FAERS Safety Report 8068467-8 (Version None)
Quarter: 2012Q1

REPORT INFORMATION
  Report Type: 
  Country: None (occurrence: None)
  Receive Date: 20120124
  Receipt Date: 20111031
  Transmission Date: 20120608
  Serious: No
  Sender: FDA-Public Use
  Company Number: US-AMGEN-USASP2011056350

PATIENT
  Sex: Female

DRUGS (12)
  1. PROLIA [Suspect]
     Indication: OSTEOPOROSIS POSTMENOPAUSAL
     Dosage: 60 MG, Q6MO
     Dates: start: 20110830
  2. CALTRATE                           /00751519/ [Concomitant]
     Dosage: UNK
  3. KLOR-CON [Concomitant]
  4. GLUCOSAMINE CHONDROITIN [Concomitant]
  5. COMBIVENT [Concomitant]
     Dosage: UNK
  6. XALATAN [Concomitant]
  7. CENTRUM SILVER                     /01292501/ [Concomitant]
  8. LOSARTAN POTASSIUM [Concomitant]
  9. CLONAZEPAM [Concomitant]
  10. FISH OIL [Concomitant]
  11. OMEPRAZOLE [Concomitant]
  12. PRAMIPEXOLE DIHYCHLLORIDE [Concomitant]

REACTIONS (6)
  - EYE DISORDER [None]
  - PRESYNCOPE [None]
  - LOSS OF CONSCIOUSNESS [None]
  - CARDIOVASCULAR DISORDER [None]
  - VISION BLURRED [None]
  - ANXIETY [None]
